FAERS Safety Report 25644132 (Version 1)
Quarter: 2025Q3

REPORT INFORMATION
  Report Type: Other
  Country: JP (occurrence: JP)
  Receive Date: 20250805
  Receipt Date: 20250805
  Transmission Date: 20251020
  Serious: Yes (Hospitalization, Other)
  Sender: ANI
  Company Number: JP-ANIPHARMA-023916

PATIENT
  Age: 50 Year
  Sex: Female

DRUGS (7)
  1. LORAZEPAM [Suspect]
     Active Substance: LORAZEPAM
     Indication: Psychotic disorder
  2. RISPERIDONE [Suspect]
     Active Substance: RISPERIDONE
     Indication: Psychotic disorder
  3. LORMETAZEPAM [Concomitant]
     Active Substance: LORMETAZEPAM
     Indication: Psychotic disorder
  4. LORMETAZEPAM [Concomitant]
     Active Substance: LORMETAZEPAM
     Indication: Schizophrenia
  5. RISPERIDONE [Suspect]
     Active Substance: RISPERIDONE
     Indication: Schizophrenia
  6. RISPERIDONE [Suspect]
     Active Substance: RISPERIDONE
     Indication: Suicide attempt
  7. LORAZEPAM [Suspect]
     Active Substance: LORAZEPAM
     Indication: Schizophrenia

REACTIONS (4)
  - Treatment noncompliance [Unknown]
  - Rhabdomyolysis [Recovered/Resolved]
  - Overdose [Unknown]
  - Intentional product misuse [Unknown]
